FAERS Safety Report 25613869 (Version 1)
Quarter: 2025Q3

REPORT INFORMATION
  Report Type: Spontaneous
  Country: US (occurrence: None)
  Receive Date: 20250726
  Receipt Date: 20250726
  Transmission Date: 20251021
  Serious: No
  Sender: FDA-CTU
  Company Number: None

PATIENT
  Age: 71 Year
  Sex: Female

DRUGS (1)
  1. TERIPARATIDE [Suspect]
     Active Substance: TERIPARATIDE
     Indication: Senile osteoporosis
     Dosage: FREQUENCY : DAILY;?STRENGTH: 250MCG/ML
     Route: 058
     Dates: start: 20240110

REACTIONS (2)
  - Fall [None]
  - Soft tissue injury [None]

NARRATIVE: CASE EVENT DATE: 20250720
